FAERS Safety Report 5472081-8 (Version None)
Quarter: 2007Q3

REPORT INFORMATION
  Report Type: 
  Country: None (occurrence: None)
  Receive Date: 20070928
  Receipt Date: 20070906
  Transmission Date: 20080115
  Serious: Yes (Hospitalization, Other)
  Sender: FDA-Public Use
  Company Number: DE-GENENTECH-214679

PATIENT
  Sex: Male
  Weight: 76.5 kg

DRUGS (8)
  1. RITUXIMAB [Suspect]
     Indication: CHRONIC LYMPHOCYTIC LEUKAEMIA
     Dosage: UNK, 1/WEEK
     Route: 042
     Dates: start: 20041116
  2. FLUDARABINE PHOSPHATE [Suspect]
     Indication: CHRONIC LYMPHOCYTIC LEUKAEMIA
     Dosage: 50 MG, 1/WEEK
     Route: 042
     Dates: start: 20041117, end: 20041119
  3. FLUDARABINE PHOSPHATE [Suspect]
     Dosage: 35 MG, 1/WEEK
     Route: 042
     Dates: start: 20041215
  4. CYCLOPHOSPHAMIDE [Suspect]
     Indication: CHRONIC LYMPHOCYTIC LEUKAEMIA
     Dosage: 500 MG, 1/WEEK
     Route: 042
     Dates: start: 20041117, end: 20041119
  5. CYCLOPHOSPHAMIDE [Suspect]
     Dosage: 350 MG, 1/WEEK
     Route: 042
     Dates: start: 20041215
  6. URALYT-U [Concomitant]
     Indication: DRUG USE FOR UNKNOWN INDICATION
     Dosage: 3 UNIT, QD
     Dates: start: 20041115
  7. ALLOPURINOL [Concomitant]
     Indication: DRUG USE FOR UNKNOWN INDICATION
     Dosage: 300 MG, QD
     Dates: start: 20041120
  8. COTRIM DS [Concomitant]
     Indication: DRUG USE FOR UNKNOWN INDICATION
     Dates: start: 20041115

REACTIONS (1)
  - FEBRILE NEUTROPENIA [None]
